FAERS Safety Report 4410505-5 (Version None)
Quarter: 2004Q3

REPORT INFORMATION
  Report Type: 
  Country: None (occurrence: None)
  Receive Date: 20040729
  Receipt Date: 20040719
  Transmission Date: 20050211
  Serious: Yes (Other)
  Sender: FDA-Public Use
  Company Number: PHFR2004GB02899

PATIENT
  Sex: Male

DRUGS (4)
  1. METOPROLOL [Suspect]
     Indication: HYPERTENSION
     Route: 048
  2. DOXAZOSIN [Suspect]
     Indication: HYPERTENSION
     Dosage: 8MG/DAY
     Route: 048
  3. CANDESARTAN [Suspect]
     Indication: HYPERTENSION
     Dosage: 16MG/DAY
  4. LERCANIDIPINE [Suspect]
     Indication: HYPERTENSION
     Dosage: 10MG/DAY

REACTIONS (1)
  - CEREBROVASCULAR DISORDER [None]
